FAERS Safety Report 21747933 (Version 1)
Quarter: 2022Q4

REPORT INFORMATION
  Report Type: Spontaneous
  Country: US (occurrence: None)
  Receive Date: 20221216
  Receipt Date: 20221216
  Transmission Date: 20230113
  Serious: Yes (unspecified)
  Sender: FDA-Public Use
  Company Number: None

PATIENT
  Age: 79 Year
  Sex: Female
  Weight: 57 kg

DRUGS (4)
  1. ERTAPENEM [Suspect]
     Active Substance: ERTAPENEM
     Indication: Device related infection
     Dosage: FREQUENCY : DAILY;?
     Route: 042
     Dates: start: 20220922, end: 20220929
  2. GABAPENTIN [Concomitant]
     Active Substance: GABAPENTIN
     Dates: start: 20210118
  3. LEVETIRACETAM [Concomitant]
     Active Substance: LEVETIRACETAM
  4. DAPTOMYCIN [Concomitant]
     Active Substance: DAPTOMYCIN
     Dates: end: 20221107

REACTIONS (2)
  - Seizure like phenomena [None]
  - Cerebrovascular disorder [None]

NARRATIVE: CASE EVENT DATE: 20220926
